FAERS Safety Report 22616585 (Version 7)
Quarter: 2023Q4

REPORT INFORMATION
  Report Type: Spontaneous
  Country: PT (occurrence: PT)
  Receive Date: 20230619
  Receipt Date: 20231101
  Transmission Date: 20240109
  Serious: Yes (Hospitalization, Other)
  Sender: FDA-Public Use
  Company Number: PT-AUROBINDO-AUR-APL-2023-041423

PATIENT
  Age: 85 Year
  Sex: Female

DRUGS (11)
  1. APIXABAN [Suspect]
     Active Substance: APIXABAN
     Indication: Suicide attempt
     Dosage: 2.5 MG, BID, (1 TABLET IN THE MORNING, 1 TABLET IN THE EVENING)
     Route: 048
     Dates: start: 2018
  2. APIXABAN [Suspect]
     Active Substance: APIXABAN
     Dosage: 2.5 MILLIGRAM 80 TABLETS/80 APIXABAN 2.5MG TABLETS 1 TOTAL
     Route: 048
  3. DIGOXIN [Suspect]
     Active Substance: DIGOXIN
     Indication: Suicide attempt
     Dosage: IN MORNING
     Route: 048
     Dates: start: 2011
  4. DIGOXIN [Suspect]
     Active Substance: DIGOXIN
     Dosage: 0.125 MILLIGRAM 20 TABLETS/20 DIGOXIN 0.125MG TABLETS 1 TOTAL
     Route: 048
  5. IRBESARTAN [Suspect]
     Active Substance: IRBESARTAN
     Indication: Suicide attempt
     Dosage: IN MORNING
     Route: 048
     Dates: start: 201809
  6. IRBESARTAN [Suspect]
     Active Substance: IRBESARTAN
     Dosage: 300 MILLIGRAM 30 TABLETS/30 IRBESARTAN 300MG TABLETS 1 TOTAL
     Route: 048
     Dates: end: 202210
  7. LERCANIDIPINE [Concomitant]
     Active Substance: LERCANIDIPINE
     Indication: Product used for unknown indication
  8. LINAGLIPTIN [Concomitant]
     Active Substance: LINAGLIPTIN
     Indication: Product used for unknown indication
     Dosage: 5 MG, QD(1 TABLET IN THE MORNING)
  9. CARVEDILOL [Concomitant]
     Active Substance: CARVEDILOL
     Indication: Product used for unknown indication
     Dosage: 25 MG (HALF IN THE MORNING, HALF AT NIGHT)
  10. PANTOPRAZOLE [Concomitant]
     Active Substance: PANTOPRAZOLE
     Indication: Product used for unknown indication
     Dosage: 40 MG, QD(1 TABLET IN THE MORNING)
  11. MIRTAZAPINE [Concomitant]
     Active Substance: MIRTAZAPINE
     Indication: Product used for unknown indication
     Dosage: 15 MG, QD (1 TABLET AT NIGHT)

REACTIONS (5)
  - Fatigue [Recovered/Resolved]
  - Bradycardia [Recovered/Resolved]
  - Hypertension [Recovered/Resolved]
  - Hypotension [Recovered/Resolved]
  - Intentional overdose [Unknown]
